FAERS Safety Report 5497372-6 (Version None)
Quarter: 2007Q4

REPORT INFORMATION
  Report Type: 
  Country: None (occurrence: None)
  Receive Date: 20071025
  Receipt Date: 20071017
  Transmission Date: 20080405
  Serious: Yes (Hospitalization)
  Sender: FDA-Public Use
  Company Number: IT-BAYER-200716274GDS

PATIENT
  Age: 79 Year
  Sex: Female

DRUGS (4)
  1. NEXAVAR [Suspect]
     Indication: RENAL CELL CARCINOMA STAGE UNSPECIFIED
     Dosage: TOTAL DAILY DOSE: 800 MG  UNIT DOSE: 200 MG
     Route: 048
     Dates: start: 20070601, end: 20070930
  2. EUTIROX [Concomitant]
     Indication: HYPOTHYROIDISM
     Dosage: UNIT DOSE: 50 MG
     Route: 048
  3. CARDICOR [Concomitant]
     Indication: HYPERTENSION
     Dosage: UNIT DOSE: 2.5 MG
     Route: 048
  4. ASPIRIN [Concomitant]
     Indication: DRUG USE FOR UNKNOWN INDICATION
     Route: 048
     Dates: end: 20070822

REACTIONS (3)
  - HEMIPLEGIA [None]
  - ISCHAEMIC STROKE [None]
  - METASTATIC RENAL CELL CARCINOMA [None]
